FAERS Safety Report 6340252-4 (Version None)
Quarter: 2009Q3

REPORT INFORMATION
  Report Type: 
  Country: None (occurrence: None)
  Receive Date: 20090902
  Receipt Date: 20090827
  Transmission Date: 20100115
  Serious: Yes (Disabling, Other)
  Sender: FDA-Public Use
  Company Number: 1242MTX09

PATIENT
  Age: 65 Year
  Sex: Female
  Weight: 46 kg

DRUGS (7)
  1. METHOTREXATE [Suspect]
     Indication: RHEUMATOID ARTHRITIS
     Dosage: 20 MG, QWEEKLY, SC
     Route: 058
  2. ACTEMRA (TOCILIZUMAB) [Suspect]
     Indication: RHEUMATOID ARTHRITIS
     Dosage: 360 MG, QMONTHLY, IV
     Route: 042
     Dates: start: 20090506
  3. FOLIC ACID [Concomitant]
  4. CELECOXIB [Concomitant]
  5. CITALOPRAM HYDROBROMIDE [Concomitant]
  6. OMEPRAZOLE [Concomitant]
  7. BUPRENORPHINE, HOURLY (TRANSDERMAL) [Concomitant]

REACTIONS (3)
  - ARTHRALGIA [None]
  - CONDITION AGGRAVATED [None]
  - SYNOVITIS [None]
